FAERS Safety Report 6108917-7 (Version None)
Quarter: 2009Q1

REPORT INFORMATION
  Report Type: 
  Country: None (occurrence: None)
  Receive Date: 20090306
  Receipt Date: 20090220
  Transmission Date: 20090719
  Serious: Yes (Hospitalization)
  Sender: FDA-Public Use
  Company Number: 2009030001

PATIENT
  Age: 71 Year
  Sex: Male

DRUGS (12)
  1. TORSEMIDE [Suspect]
     Indication: MYOCARDIAL ISCHAEMIA
     Dosage: 50 MG (50 MG, 1 IN 1 D)
     Dates: start: 20080901
  2. ASPIRIN [Concomitant]
  3. CORDARONE [Concomitant]
  4. METOPROLOL TARTRATE [Concomitant]
  5. ATORVASTATIN CALCIUM [Concomitant]
  6. SPASMO-URGENIN NEO (TROSPIUM CHLORIDE) [Concomitant]
  7. LANSOPRAZOLE [Concomitant]
  8. NULYTELY [Concomitant]
  9. ALDACTONE [Concomitant]
  10. ACETAMINOPHEN [Concomitant]
  11. RAMIPRIL [Concomitant]
  12. TRAMADOL HYDROHLORIDE [Concomitant]

REACTIONS (8)
  - ACUTE PRERENAL FAILURE [None]
  - ASTHENIA [None]
  - DEHYDRATION [None]
  - DIZZINESS [None]
  - DYSPNOEA [None]
  - HYPERHIDROSIS [None]
  - TINNITUS [None]
  - VISION BLURRED [None]
